FAERS Safety Report 19267913 (Version 17)
Quarter: 2023Q2

REPORT INFORMATION
  Report Type: Report from Study
  Country: CO (occurrence: CO)
  Receive Date: 20210517
  Receipt Date: 20230629
  Transmission Date: 20230722
  Serious: Yes (Hospitalization)
  Sender: FDA-Public Use
  Company Number: CO-TAKEDA-CO202023069

PATIENT
  Age: 7 Year
  Sex: Male
  Weight: 26 kg

DRUGS (2)
  1. HUMAN IMMUNOGLOBULIN G\HYALURONIDASE RECOMBINANT HUMAN [Suspect]
     Active Substance: HUMAN IMMUNOGLOBULIN G\HYALURONIDASE RECOMBINANT HUMAN
     Indication: Primary immunodeficiency syndrome
     Dosage: 7.5 GRAM, MONTHLY
     Route: 058
     Dates: start: 20200714
  2. HUMAN IMMUNOGLOBULIN G\HYALURONIDASE RECOMBINANT HUMAN [Suspect]
     Active Substance: HUMAN IMMUNOGLOBULIN G\HYALURONIDASE RECOMBINANT HUMAN
     Dosage: 7.5 GRAM, Q4WEEKS
     Route: 058

REACTIONS (22)
  - Ear infection [Not Recovered/Not Resolved]
  - Sinusitis [Not Recovered/Not Resolved]
  - Hypoaesthesia [Recovered/Resolved]
  - Abdominal pain [Recovered/Resolved]
  - Malaise [Recovered/Resolved]
  - Pyrexia [Not Recovered/Not Resolved]
  - Pain [Not Recovered/Not Resolved]
  - Poor venous access [Recovered/Resolved]
  - Inflammation [Recovering/Resolving]
  - Weight increased [Unknown]
  - Body height increased [Unknown]
  - Influenza [Recovered/Resolved]
  - Bone pain [Recovered/Resolved]
  - Puncture site pain [Recovered/Resolved]
  - Secretion discharge [Not Recovered/Not Resolved]
  - Multiple allergies [Unknown]
  - Nasal congestion [Recovering/Resolving]
  - Cough [Recovering/Resolving]
  - Erythema [Recovering/Resolving]
  - Musculoskeletal chest pain [Recovering/Resolving]
  - Incorrect drug administration rate [Unknown]
  - Product dose omission issue [Unknown]

NARRATIVE: CASE EVENT DATE: 20200714
